FAERS Safety Report 9156993 (Version 1)
Quarter: 2013Q1

REPORT INFORMATION
  Report Type: Spontaneous
  Country: US (occurrence: US)
  Receive Date: 20130312
  Receipt Date: 20130312
  Transmission Date: 20140127
  Serious: No
  Sender: FDA-Public Use
  Company Number: US-PFIZER INC-2013081215

PATIENT
  Sex: Female

DRUGS (3)
  1. ALPRAZOLAM [Suspect]
     Dosage: 0.5 MG, AS NEEDED
     Route: 048
     Dates: start: 1980
  2. ALPRAZOLAM [Suspect]
     Dosage: 0.5 MG, AS NEEDED
     Route: 048
  3. CLONAZEPAM [Concomitant]
     Dosage: UNK
     Dates: start: 1980

REACTIONS (2)
  - Inappropriate schedule of drug administration [Unknown]
  - Drug ineffective [Unknown]
